FAERS Safety Report 6147691-5 (Version None)
Quarter: 2009Q2

REPORT INFORMATION
  Report Type: 
  Country: None (occurrence: None)
  Receive Date: 20090408
  Receipt Date: 20090406
  Transmission Date: 20091009
  Serious: Yes (Death, Other)
  Sender: FDA-Public Use
  Company Number: PHEH2009US02007

PATIENT
  Sex: Male
  Weight: 153.29 kg

DRUGS (6)
  1. CLOZARIL [Suspect]
     Indication: SCHIZOAFFECTIVE DISORDER
     Dosage: 200 MG, QHS
     Route: 048
     Dates: start: 20050610, end: 20050619
  2. LAMISIL                            /00992601/ [Concomitant]
     Dosage: UNK, UNK
  3. COGENTIN [Concomitant]
     Dosage: 2 MG, BID
  4. HALDOL [Concomitant]
     Dosage: 10 MG, QHS
  5. SEROQUEL [Concomitant]
     Dosage: UNK, UNK
  6. RISPERDAL [Concomitant]
     Dosage: UNK, UNK

REACTIONS (12)
  - ARRHYTHMIA [None]
  - CARDIAC ARREST [None]
  - CARDIOMEGALY [None]
  - CYANOSIS [None]
  - GRANULOMA [None]
  - HYPERTENSIVE HEART DISEASE [None]
  - LEFT VENTRICULAR HYPERTROPHY [None]
  - PULMONARY OEDEMA [None]
  - SLEEP APNOEA SYNDROME [None]
  - SNORING [None]
  - UNRESPONSIVE TO STIMULI [None]
  - VISCERAL CONGESTION [None]
